FAERS Safety Report 16052497 (Version 2)
Quarter: 2019Q2

REPORT INFORMATION
  Report Type: Spontaneous
  Country: JP (occurrence: JP)
  Receive Date: 20190308
  Receipt Date: 20190418
  Transmission Date: 20190711
  Serious: Yes (Hospitalization, Other)
  Sender: FDA-Public Use
  Company Number: JP-SA-2019SA060699

PATIENT
  Age: 62 Year
  Sex: Male

DRUGS (10)
  1. INSULIN LISPRO [Suspect]
     Active Substance: INSULIN LISPRO
     Dosage: TOTAL DOSE OF INSULIN: 94 U
     Route: 065
  2. INSULIN LISPRO [Suspect]
     Active Substance: INSULIN LISPRO
     Dosage: 94 U, QD
     Route: 065
  3. LANTUS SOLOSTAR [Suspect]
     Active Substance: INSULIN GLARGINE
     Dosage: 6 U, QD
     Route: 058
  4. INSULIN LISPRO [Suspect]
     Active Substance: INSULIN LISPRO
     Dosage: 18 U, QD
     Route: 065
  5. LANTUS SOLOSTAR [Suspect]
     Active Substance: INSULIN GLARGINE
     Dosage: TOTAL DOSE OF INSULIN: 94 U
     Route: 058
  6. LANTUS SOLOSTAR [Suspect]
     Active Substance: INSULIN GLARGINE
     Dosage: TOTAL DOSE OF INSULIN: 66 U
     Route: 058
  7. LANTUS SOLOSTAR [Suspect]
     Active Substance: INSULIN GLARGINE
     Dosage: 22 U, QD
     Route: 058
  8. INSULIN LISPRO [Suspect]
     Active Substance: INSULIN LISPRO
     Indication: TYPE 1 DIABETES MELLITUS
     Dosage: TID (TOTAL DOSE OF INSULIN: 66 U)
     Route: 065
     Dates: start: 200401
  9. LANTUS SOLOSTAR [Suspect]
     Active Substance: INSULIN GLARGINE
     Indication: TYPE 1 DIABETES MELLITUS
     Dosage: 22 U, QD (TOTAL DOSE OF INSULIN: 66 U)
     Route: 058
     Dates: start: 200401
  10. INSULIN LISPRO [Suspect]
     Active Substance: INSULIN LISPRO
     Dosage: TOTAL DOSE OF INSULIN: 66 U
     Route: 065

REACTIONS (7)
  - Cutaneous amyloidosis [Recovering/Resolving]
  - Hypoglycaemia [Recovered/Resolved]
  - Injection site induration [Not Recovered/Not Resolved]
  - Diabetes mellitus inadequate control [Recovered/Resolved]
  - Blood glucose increased [Recovered/Resolved]
  - Insulin resistance [Recovered/Resolved]
  - Glycosylated haemoglobin increased [Recovered/Resolved]

NARRATIVE: CASE EVENT DATE: 200508
